FAERS Safety Report 24878793 (Version 1)
Quarter: 2025Q1

REPORT INFORMATION
  Report Type: Spontaneous
  Country: IR (occurrence: IR)
  Receive Date: 20250123
  Receipt Date: 20250123
  Transmission Date: 20250408
  Serious: Yes (Hospitalization, Congenital Anomaly, Other)
  Sender: Norvium Bioscience
  Company Number: IR-Norvium Bioscience LLC-079817

PATIENT

DRUGS (1)
  1. SERTRALINE HYDROCHLORIDE [Suspect]
     Active Substance: SERTRALINE HYDROCHLORIDE
     Indication: Depression
     Route: 064

REACTIONS (2)
  - Ductus arteriosus stenosis foetal [Recovered/Resolved]
  - Foetal exposure during pregnancy [Unknown]
